FAERS Safety Report 10577693 (Version 1)
Quarter: 2014Q4

REPORT INFORMATION
  Report Type: Spontaneous
  Country: US (occurrence: US)
  Receive Date: 20141111
  Receipt Date: 20141111
  Transmission Date: 20150529
  Serious: Yes (Other)
  Sender: FDA-Public Use
  Company Number: US-ABBVIE-14P-163-1304991-00

PATIENT
  Sex: Male

DRUGS (2)
  1. AXIRON [Suspect]
     Active Substance: TESTOSTERONE
     Indication: PRODUCT USED FOR UNKNOWN INDICATION
     Route: 065
     Dates: start: 201203, end: 201207
  2. ANDROGEL [Suspect]
     Active Substance: TESTOSTERONE
     Indication: BLOOD TESTOSTERONE DECREASED
     Route: 065
     Dates: start: 201210, end: 201304

REACTIONS (5)
  - Myocardial infarction [Unknown]
  - Deep vein thrombosis [Unknown]
  - Pain [Unknown]
  - Pulmonary embolism [Unknown]
  - Economic problem [Unknown]

NARRATIVE: CASE EVENT DATE: 201211
